FAERS Safety Report 22339349 (Version 1)
Quarter: 2023Q2

REPORT INFORMATION
  Report Type: Spontaneous
  Country: CN (occurrence: CN)
  Receive Date: 20230518
  Receipt Date: 20230518
  Transmission Date: 20230722
  Serious: Yes (Other)
  Sender: FDA-Public Use
  Company Number: CN-PFIZER INC-PV202300085830

PATIENT
  Age: 8 Week
  Sex: Female

DRUGS (1)
  1. AZITHROMYCIN [Suspect]
     Active Substance: AZITHROMYCIN
     Indication: Bronchiolitis
     Dosage: 0.5 DF, 1X/DAY
     Route: 048
     Dates: start: 20230505, end: 20230507

REACTIONS (1)
  - Infantile diarrhoea [Recovering/Resolving]

NARRATIVE: CASE EVENT DATE: 20230507
